FAERS Safety Report 7921790-7 (Version None)
Quarter: 2011Q4

REPORT INFORMATION
  Report Type: 
  Country: None (occurrence: None)
  Receive Date: 20111117
  Receipt Date: 20111111
  Transmission Date: 20120403
  Serious: Yes (Hospitalization)
  Sender: FDA-Public Use
  Company Number: IT-GLAXOSMITHKLINE-B0763243A

PATIENT
  Sex: Male

DRUGS (13)
  1. PRAMIPEXOLE DIHYDROCHLORIDE [Concomitant]
     Route: 048
  2. LYRICA [Suspect]
     Indication: PRODUCT USED FOR UNKNOWN INDICATION
     Route: 065
     Dates: start: 20111106, end: 20111106
  3. OXYCONTIN [Suspect]
     Indication: PRODUCT USED FOR UNKNOWN INDICATION
     Dosage: 60MG PER DAY
     Route: 048
     Dates: start: 20111106, end: 20111106
  4. AMIODARONE HCL [Concomitant]
     Route: 048
  5. MADOPAR [Concomitant]
     Indication: PARKINSON'S DISEASE
     Route: 048
  6. UNKNOWN DRUG [Concomitant]
     Indication: HYPERTENSION
     Route: 048
  7. POLASE [Concomitant]
     Route: 048
  8. REQUIP [Suspect]
     Indication: PRODUCT USED FOR UNKNOWN INDICATION
     Route: 048
     Dates: start: 20111106, end: 20111106
  9. OMEPRAZOLE [Concomitant]
     Route: 048
  10. LASIX [Concomitant]
     Route: 048
  11. UNOPROST [Concomitant]
     Route: 048
  12. TOLTERODINE TARTRATE [Concomitant]
     Route: 048
  13. UNKNOWN DRUG [Concomitant]
     Route: 048

REACTIONS (5)
  - HYPOTENSION [None]
  - CONFUSIONAL STATE [None]
  - SOPOR [None]
  - DRUG ADMINISTRATION ERROR [None]
  - URINARY RETENTION [None]
